FAERS Safety Report 13369119 (Version 2)
Quarter: 2017Q2

REPORT INFORMATION
  Report Type: Spontaneous
  Country: JP (occurrence: JP)
  Receive Date: 20170324
  Receipt Date: 20170630
  Transmission Date: 20170830
  Serious: Yes (Hospitalization, Other)
  Sender: FDA-Public Use
  Company Number: JP-ROCHE-1911192

PATIENT
  Age: 66 Year
  Sex: Male

DRUGS (3)
  1. KIPRES [Concomitant]
     Active Substance: MONTELUKAST SODIUM
     Indication: PRODUCT USED FOR UNKNOWN INDICATION
     Dosage: UNK
     Route: 065
  2. XOLAIR [Suspect]
     Active Substance: OMALIZUMAB
     Indication: ASTHMA
     Route: 058
     Dates: start: 20160621, end: 20170307
  3. IPD [Concomitant]
     Active Substance: SUPLATAST TOSILATE
     Indication: PRODUCT USED FOR UNKNOWN INDICATION
     Dosage: UNK
     Route: 048

REACTIONS (17)
  - Alanine aminotransferase increased [Recovered/Resolved]
  - Blood alkaline phosphatase increased [Recovered/Resolved]
  - White blood cell count increased [Recovered/Resolved]
  - Haemoglobin decreased [Unknown]
  - Aspartate aminotransferase increased [Recovered/Resolved]
  - Lymphocyte percentage decreased [Recovered/Resolved]
  - Platelet count increased [Recovered/Resolved]
  - Red blood cell count decreased [Unknown]
  - Sinusitis [Unknown]
  - Blood lactate dehydrogenase increased [Recovered/Resolved]
  - Monocyte percentage increased [Unknown]
  - Cerebral infarction [Recovering/Resolving]
  - Blood creatinine increased [Recovered/Resolved]
  - Eosinophilic granulomatosis with polyangiitis [Recovering/Resolving]
  - Monocyte percentage decreased [Unknown]
  - Neutrophil percentage decreased [Recovered/Resolved]
  - Haematocrit decreased [Unknown]

NARRATIVE: CASE EVENT DATE: 20170203
